FAERS Safety Report 8157002-1 (Version None)
Quarter: 2012Q1

REPORT INFORMATION
  Report Type: 
  Country: None (occurrence: None)
  Receive Date: 20120222
  Receipt Date: 20120214
  Transmission Date: 20120608
  Serious: Yes (Hospitalization)
  Sender: FDA-Public Use
  Company Number: JP-MERCK-1110USA04571

PATIENT
  Age: 74 Year
  Sex: Female

DRUGS (3)
  1. ATELEC [Concomitant]
     Indication: HYPERTENSION
     Dosage: 10 MG IN MORNING AND 5MG IN EVENING-ADMINISTERING FOR A LONG TERM
     Route: 048
  2. JANUVIA [Suspect]
     Indication: TYPE 2 DIABETES MELLITUS
     Route: 048
     Dates: start: 20110706, end: 20110819
  3. METHYCOBAL [Concomitant]
     Indication: DIABETIC NEUROPATHY
     Dosage: ADMINISTERING FOR A LONG TERM
     Route: 048

REACTIONS (1)
  - SERONEGATIVE ARTHRITIS [None]
